FAERS Safety Report 8495326-9 (Version None)
Quarter: 2012Q2

REPORT INFORMATION
  Report Type: 
  Country: None (occurrence: None)
  Receive Date: 20120628
  Receipt Date: 20120612
  Transmission Date: 20120825
  Serious: Yes (Other)
  Sender: FDA-Public Use
  Company Number: 2011MA002968

PATIENT
  Sex: Female

DRUGS (21)
  1. ALPRAZOLAM [Concomitant]
  2. CARBIDOPA AND LEVODOPA [Concomitant]
  3. CYMBALTA [Concomitant]
  4. REQUIP [Concomitant]
  5. ZOLOFT [Concomitant]
  6. ZOLOFT [Concomitant]
  7. TRAZODONE HYDROCHLORIDE [Concomitant]
  8. LIPITOR [Concomitant]
  9. ADVAIR DISKUS 100/50 [Concomitant]
  10. VYTORIN [Concomitant]
  11. WELLBUTRIN [Concomitant]
  12. BUPROPION HYDROCHLORIDE [Concomitant]
  13. XYZAL [Concomitant]
  14. HYDROCODONE BITARTRATE AND ACETAMINOPHEN [Concomitant]
  15. METOCLOPRAMIDE [Suspect]
     Indication: PRODUCT USED FOR UNKNOWN INDICATION
     Dosage: 10 MG; 30 MIN AC + HS; PO
     Route: 048
     Dates: start: 20040205, end: 20100107
  16. CYCLOBENZAPRINE [Concomitant]
  17. ASTELIN [Concomitant]
  18. AMITIZA [Concomitant]
  19. MELOXICAM [Concomitant]
  20. XANAX [Concomitant]
  21. NORCO [Concomitant]

REACTIONS (10)
  - DYSTONIA [None]
  - AKATHISIA [None]
  - TARDIVE DYSKINESIA [None]
  - INJURY [None]
  - ECONOMIC PROBLEM [None]
  - FAMILY STRESS [None]
  - EMOTIONAL DISORDER [None]
  - TREMOR [None]
  - EXTRAPYRAMIDAL DISORDER [None]
  - MOVEMENT DISORDER [None]
